FAERS Safety Report 6831488-4 (Version None)
Quarter: 2010Q3

REPORT INFORMATION
  Report Type: 
  Country: None (occurrence: None)
  Receive Date: 20100712
  Receipt Date: 20100708
  Transmission Date: 20110219
  Serious: Yes (Other)
  Sender: FDA-Public Use
  Company Number: D0068243A

PATIENT

DRUGS (1)
  1. REQUIP [Suspect]
     Route: 065

REACTIONS (2)
  - DYSKINESIA [None]
  - PSYCHOTIC DISORDER [None]
